FAERS Safety Report 17648742 (Version 1)
Quarter: 2020Q2

REPORT INFORMATION
  Report Type: Not Available
  Country: US (occurrence: US)
  Receive Date: 20200408
  Receipt Date: 20200408
  Transmission Date: 20200713
  Serious: No
  Sender: FDA-Public Use
  Company Number: US-NEUROCRINE BIOSCIENCES INC.-2020NBI01060

PATIENT
  Sex: Male

DRUGS (1)
  1. INGREZZA [Suspect]
     Active Substance: VALBENAZINE
     Indication: TARDIVE DYSKINESIA
     Route: 048
     Dates: start: 20200225, end: 20200314

REACTIONS (5)
  - Pain [Unknown]
  - Urticaria [Unknown]
  - Drug hypersensitivity [Unknown]
  - Oropharyngeal pain [Unknown]
  - Angioedema [Unknown]

NARRATIVE: CASE EVENT DATE: 2020
